FAERS Safety Report 8787151 (Version 2)
Quarter: 2015Q3

REPORT INFORMATION
  Report Type: Spontaneous
  Country: US (occurrence: US)
  Receive Date: 20120914
  Receipt Date: 20150908
  Transmission Date: 20151125
  Serious: Yes (Hospitalization, Disabling, Other)
  Sender: FDA-Public Use
  Company Number: US-ELI_LILLY_AND_COMPANY-US201209001277

PATIENT
  Age: 53 Year
  Sex: Female

DRUGS (4)
  1. CYMBALTA [Suspect]
     Active Substance: DULOXETINE HYDROCHLORIDE
     Indication: PAIN
     Dosage: 60 MG, QD
     Dates: start: 2008
  2. CYMBALTA [Suspect]
     Active Substance: DULOXETINE HYDROCHLORIDE
     Dosage: 60 MG, QOD
     Route: 065
     Dates: start: 2013
  3. CYMBALTA [Suspect]
     Active Substance: DULOXETINE HYDROCHLORIDE
     Dosage: 60 MG, 2/W
     Dates: start: 201206
  4. CYMBALTA [Suspect]
     Active Substance: DULOXETINE HYDROCHLORIDE
     Dosage: 60 MG, QD
     Dates: start: 201206

REACTIONS (13)
  - Irritability [Unknown]
  - Blood calcium increased [Unknown]
  - Loss of consciousness [Unknown]
  - Parathyroid tumour [Unknown]
  - Dizziness [Unknown]
  - Impatience [Unknown]
  - Hypoaesthesia [Unknown]
  - Pharyngeal mass [Unknown]
  - Fall [Unknown]
  - Joint injury [Unknown]
  - Rotator cuff syndrome [Unknown]
  - Drug withdrawal syndrome [Unknown]
  - Spinal fracture [Unknown]

NARRATIVE: CASE EVENT DATE: 2010
